FAERS Safety Report 5369491-6 (Version None)
Quarter: 2007Q2

REPORT INFORMATION
  Report Type: 
  Country: None (occurrence: None)
  Receive Date: 20070625
  Receipt Date: 20070625
  Transmission Date: 20071010
  Serious: Yes (Other)
  Sender: FDA-Public Use
  Company Number: A0659529A

PATIENT
  Age: 35 Year
  Sex: Female

DRUGS (1)
  1. ALLI [Suspect]
     Indication: WEIGHT CONTROL
     Dates: start: 20070618, end: 20070620

REACTIONS (4)
  - DEFAECATION URGENCY [None]
  - FAECAL INCONTINENCE [None]
  - FLATULENCE [None]
  - RECTAL DISCHARGE [None]
